FAERS Safety Report 9934199 (Version 1)
Quarter: 2014Q1

REPORT INFORMATION
  Report Type: Spontaneous
  Country: US (occurrence: US)
  Receive Date: 20140228
  Receipt Date: 20140228
  Transmission Date: 20141002
  Serious: No
  Sender: FDA-Public Use
  Company Number: US-B.I. PHARMACEUTICALS,INC./RIDGEFIELD-2014-BI-07610BP

PATIENT
  Age: 84 Year
  Sex: Female

DRUGS (10)
  1. PRADAXA [Suspect]
     Indication: HYPERTENSION
     Dosage: 300 MG
     Route: 048
     Dates: start: 201301
  2. SIMVASTATIN [Concomitant]
     Route: 048
  3. DICYCLOMINE [Concomitant]
     Route: 048
  4. AMIODARONE [Concomitant]
     Route: 048
  5. LISINOPRIL [Concomitant]
     Route: 048
  6. LORATAB [Concomitant]
     Route: 048
  7. AMLODIPINE [Concomitant]
     Route: 048
  8. OCUVITE [Concomitant]
     Route: 048
  9. METOPROLOL TARTRATE [Concomitant]
     Route: 048
  10. POTASSIUM [Concomitant]
     Route: 048

REACTIONS (2)
  - Memory impairment [Not Recovered/Not Resolved]
  - Off label use [Not Recovered/Not Resolved]
